FAERS Safety Report 5243730-4 (Version None)
Quarter: 2007Q1

REPORT INFORMATION
  Report Type: 
  Country: None (occurrence: None)
  Receive Date: 20070222
  Receipt Date: 20070209
  Transmission Date: 20070707
  Serious: Yes (Other)
  Sender: FDA-Public Use
  Company Number: PHBS2007BR02720

PATIENT
  Age: 42 Year
  Sex: Female
  Weight: 50 kg

DRUGS (2)
  1. ZOLEDRONATE [Suspect]
     Indication: BREAST CANCER METASTATIC
     Route: 042
     Dates: start: 20030101, end: 20070201
  2. XELODA [Concomitant]
     Indication: BREAST CANCER METASTATIC
     Route: 048
     Dates: start: 20060801

REACTIONS (1)
  - OSTEONECROSIS [None]
